FAERS Safety Report 21570735 (Version 1)
Quarter: 2022Q4

REPORT INFORMATION
  Report Type: Other
  Country: None (occurrence: TN)
  Receive Date: 20221109
  Receipt Date: 20221109
  Transmission Date: 20230113
  Serious: Yes (Other)
  Sender: FDA-Public Use
  Company Number: TN-Ajanta Pharma USA Inc.-2134683

PATIENT
  Age: 5 Year
  Sex: Female

DRUGS (3)
  1. OXYBUTYNIN CHLORIDE [Suspect]
     Active Substance: OXYBUTYNIN CHLORIDE
     Indication: Hypertonic bladder
  2. CORTIS [Concomitant]
  3. AEROL [Concomitant]

REACTIONS (1)
  - Blindness [Unknown]
